FAERS Safety Report 9536409 (Version 1)
Quarter: 2013Q1

REPORT INFORMATION
  Report Type: Spontaneous
  Country: US (occurrence: None)
  Receive Date: 20130327
  Receipt Date: 20130327
  Transmission Date: 20140127
  Serious: Yes (Hospitalization)
  Sender: FDA-Public Use
  Company Number: 2011-2710

PATIENT
  Age: 63 Year
  Sex: Female
  Weight: 79 kg

DRUGS (6)
  1. SOMATULINE DEPOT INJECTION (90MG) [Suspect]
     Indication: ACROMEGALY
     Dosage: 90 MG (90 MG, 1 IN 28 D), PARENTERAL
     Route: 051
     Dates: start: 20100315
  2. UNSPECIFIED ANTIDEPRESSANT (ANTIDEPRESSANTS) [Concomitant]
  3. UNSPECIFIED ANTIHYPERTENSIVE [Concomitant]
  4. UNSPECIFIED HYPOGLYCEMIC (ORAL ANTIDIABETICS) [Concomitant]
  5. UNSPECIFIED PSYCHIATRIC MEDICATION (ALL OTHER NON-THERAPEUTIC PRODUCTS) [Concomitant]
  6. UNSPECIFIED THYROID HORMONE (THYROID HORMONES) [Concomitant]

REACTIONS (3)
  - Pneumonia [None]
  - Diverticulitis [None]
  - Nausea [None]
